FAERS Safety Report 8965139 (Version 2)
Quarter: 2013Q1

REPORT INFORMATION
  Report Type: Spontaneous
  Country: DE (occurrence: DE)
  Receive Date: 20121213
  Receipt Date: 20130109
  Transmission Date: 20140127
  Serious: Yes (Other)
  Sender: FDA-Public Use
  Company Number: DE-BRISTOL-MYERS SQUIBB COMPANY-17175928

PATIENT
  Age: 52 Year
  Sex: Female
  Weight: 78.5 kg

DRUGS (2)
  1. ORENCIA [Suspect]
     Route: 042
  2. ABATACEPT SUBQ INJECTION 125MG/ML [Suspect]
     Indication: RHEUMATOID ARTHRITIS
     Dosage: 1DF= 125MG/ML?PREVIOUSLY GIVEN ORENCIA IV.?150MG:SC
     Route: 058
     Dates: start: 20121123, end: 20121130

REACTIONS (5)
  - Hypertensive crisis [Unknown]
  - Heart rate increased [Recovered/Resolved with Sequelae]
  - Nausea [Recovered/Resolved with Sequelae]
  - Restlessness [Recovered/Resolved with Sequelae]
  - Feeling hot [Recovered/Resolved with Sequelae]
